FAERS Safety Report 16758995 (Version 1)
Quarter: 2019Q3

REPORT INFORMATION
  Report Type: Spontaneous
  Country: PL (occurrence: PL)
  Receive Date: 20190830
  Receipt Date: 20190830
  Transmission Date: 20191005
  Serious: Yes (Death)
  Sender: FDA-Public Use
  Company Number: PHHY2019PL201949

PATIENT
  Age: 57 Year
  Sex: Female

DRUGS (21)
  1. CEFOTAXIME [Concomitant]
     Active Substance: CEFOTAXIME SODIUM
     Indication: ALCOHOL POISONING
  2. VITAMINS NOS [Concomitant]
     Active Substance: VITAMINS
     Indication: ACUTE KIDNEY INJURY
     Route: 065
  3. SODIUM BICARBONATE. [Concomitant]
     Active Substance: SODIUM BICARBONATE
     Indication: ALCOHOL POISONING
  4. POTASSIUM CHLORIDE. [Concomitant]
     Active Substance: POTASSIUM CHLORIDE
     Indication: ACUTE KIDNEY INJURY
     Route: 042
  5. CALCIUM [Concomitant]
     Active Substance: CALCIUM
     Indication: ACUTE KIDNEY INJURY
     Route: 065
  6. PROMAZINE [Concomitant]
     Active Substance: PROMAZINE
     Indication: HALLUCINATION
     Route: 065
  7. METOCLOPRAMIDE. [Concomitant]
     Active Substance: METOCLOPRAMIDE
     Indication: ACUTE KIDNEY INJURY
  8. FUROSEMIDE. [Suspect]
     Active Substance: FUROSEMIDE
     Indication: ACUTE KIDNEY INJURY
     Dosage: UNK UNK, NO TREATMENT
     Route: 065
  9. SODIUM BICARBONATE. [Concomitant]
     Active Substance: SODIUM BICARBONATE
     Indication: ACUTE KIDNEY INJURY
     Route: 065
  10. CEFOTAXIME [Concomitant]
     Active Substance: CEFOTAXIME SODIUM
     Indication: ACUTE KIDNEY INJURY
     Route: 065
  11. POTASSIUM CHLORIDE. [Concomitant]
     Active Substance: POTASSIUM CHLORIDE
     Indication: ALCOHOL POISONING
  12. MANNITOL. [Concomitant]
     Active Substance: MANNITOL
     Indication: ALCOHOL POISONING
  13. MANNITOL. [Concomitant]
     Active Substance: MANNITOL
     Indication: ACUTE KIDNEY INJURY
     Route: 065
  14. CALCIUM [Concomitant]
     Active Substance: CALCIUM
     Indication: ALCOHOL POISONING
  15. RANITIDINE HYDROCHLORIDE. [Concomitant]
     Active Substance: RANITIDINE HYDROCHLORIDE
     Indication: ACUTE KIDNEY INJURY
     Route: 065
  16. RANITIDINE HYDROCHLORIDE. [Concomitant]
     Active Substance: RANITIDINE HYDROCHLORIDE
     Indication: ALCOHOL POISONING
  17. FUROSEMIDE. [Suspect]
     Active Substance: FUROSEMIDE
     Indication: ALCOHOL POISONING
  18. PANCURONIUM [Suspect]
     Active Substance: PANCURONIUM
     Indication: PRODUCT USED FOR UNKNOWN INDICATION
     Route: 065
  19. METOCLOPRAMIDE. [Concomitant]
     Active Substance: METOCLOPRAMIDE
     Indication: ALCOHOL POISONING
  20. VITAMINS NOS [Concomitant]
     Active Substance: VITAMINS
     Indication: ALCOHOL POISONING
  21. HALOPERIDOL. [Concomitant]
     Active Substance: HALOPERIDOL
     Indication: HALLUCINATION
     Route: 065

REACTIONS (2)
  - Cardio-respiratory arrest [Fatal]
  - Wrong product administered [Fatal]
